FAERS Safety Report 17734175 (Version 1)
Quarter: 2020Q2

REPORT INFORMATION
  Report Type: Spontaneous
  Country: US (occurrence: US)
  Receive Date: 20200501
  Receipt Date: 20200501
  Transmission Date: 20200714
  Serious: Yes (Hospitalization, Other)
  Sender: FDA-Public Use
  Company Number: US-SA-2020SA111866

PATIENT
  Age: 92 Year
  Sex: Male

DRUGS (4)
  1. ELITEK [Suspect]
     Active Substance: RASBURICASE
     Indication: B-CELL LYMPHOMA
  2. RITUXIMAB. [Suspect]
     Active Substance: RITUXIMAB
     Indication: B-CELL LYMPHOMA
     Dosage: 780 MG
     Route: 065
     Dates: start: 20200115
  3. ELITEK [Suspect]
     Active Substance: RASBURICASE
     Indication: PRODUCT USED FOR UNKNOWN INDICATION
     Route: 065
  4. ADCETRIS [Suspect]
     Active Substance: BRENTUXIMAB VEDOTIN
     Indication: B-CELL LYMPHOMA
     Dosage: UNK
     Route: 065
     Dates: start: 20200115

REACTIONS (7)
  - Oedema peripheral [Unknown]
  - Cardiac tamponade [Unknown]
  - Renal failure [Unknown]
  - Pericardial effusion [Unknown]
  - Off label use [Unknown]
  - Renal impairment [Unknown]
  - Tumour lysis syndrome [Unknown]
